FAERS Safety Report 8896989 (Version 1)
Quarter: 2012Q4

REPORT INFORMATION
  Report Type: Spontaneous
  Country: DE (occurrence: None)
  Receive Date: 20121102
  Receipt Date: 20121102
  Transmission Date: 20130627
  Serious: Yes (Other)
  Sender: FDA-Public Use
  Company Number: VAL_00946_2012

PATIENT

DRUGS (5)
  1. METOPROLOL [Suspect]
     Indication: HYPERTENSION
     Dosage: 47.5 mg, /day [maternal dose] Transplacental
     Route: 064
  2. RESTEX [Concomitant]
  3. LAMOTRIGINE [Concomitant]
  4. LEVONORGESTREL [Concomitant]
  5. ETHINYLESTRADIOL [Concomitant]

REACTIONS (2)
  - Small for dates baby [None]
  - Maternal drugs affecting foetus [None]
